FAERS Safety Report 25242816 (Version 1)
Quarter: 2025Q2

REPORT INFORMATION
  Report Type: Spontaneous
  Country: US (occurrence: US)
  Receive Date: 20250427
  Receipt Date: 20250427
  Transmission Date: 20250716
  Serious: Yes (Other)
  Sender: ABBVIE
  Company Number: US-ABBVIE-6247117

PATIENT
  Age: 73 Year
  Sex: Female

DRUGS (1)
  1. REFRESH PLUS [Suspect]
     Active Substance: CARBOXYMETHYLCELLULOSE SODIUM
     Indication: Dry eye
     Route: 047

REACTIONS (3)
  - Cataract [Unknown]
  - Periorbital swelling [Unknown]
  - Product colour issue [Unknown]

NARRATIVE: CASE EVENT DATE: 20250101
